FAERS Safety Report 22399966 (Version 1)
Quarter: 2023Q2

REPORT INFORMATION
  Report Type: Spontaneous
  Country: US (occurrence: US)
  Receive Date: 20230602
  Receipt Date: 20230602
  Transmission Date: 20230721
  Serious: Yes (Other)
  Sender: FDA-Public Use
  Company Number: US-MAYNE PHARMA-2023TMD00275

PATIENT
  Age: 63 Year
  Sex: Male

DRUGS (2)
  1. ESTRADIOL [Suspect]
     Active Substance: ESTRADIOL
     Indication: Transgender hormonal therapy
     Dosage: 2 MG, 1X/DAY
  2. ESTROGENS [Suspect]
     Active Substance: ESTROGENS
     Indication: Transgender hormonal therapy
     Dosage: PATCH

REACTIONS (1)
  - Hepatic cirrhosis [Recovered/Resolved]
